FAERS Safety Report 12602411 (Version 1)
Quarter: 2016Q3

REPORT INFORMATION
  Report Type: Spontaneous
  Country: US (occurrence: US)
  Receive Date: 20160728
  Receipt Date: 20160728
  Transmission Date: 20161109
  Serious: No
  Sender: FDA-Public Use
  Company Number: US-BAUSCH-BL-2016-005550

PATIENT
  Age: 68 Year
  Sex: Female
  Weight: 47.67 kg

DRUGS (1)
  1. EYE ALLERGY RELIEF [Suspect]
     Active Substance: NAPHAZOLINE HYDROCHLORIDE\PHENIRAMINE MALEATE
     Indication: EYE DISORDER
     Route: 047

REACTIONS (3)
  - Off label use [Unknown]
  - Mydriasis [Unknown]
  - Vision blurred [Unknown]

NARRATIVE: CASE EVENT DATE: 20160302
